FAERS Safety Report 20003672 (Version 1)
Quarter: 2021Q4

REPORT INFORMATION
  Report Type: Spontaneous
  Country: NL (occurrence: NL)
  Receive Date: 20211028
  Receipt Date: 20211028
  Transmission Date: 20220304
  Serious: Yes (Hospitalization, Other)
  Sender: FDA-Public Use
  Company Number: NL-PRINSTON PHARMACEUTICAL INC.-2021PRN00378

PATIENT
  Age: 68 Year
  Sex: Male

DRUGS (1)
  1. HYDROCHLOROTHIAZIDE [Suspect]
     Active Substance: HYDROCHLOROTHIAZIDE
     Route: 065

REACTIONS (8)
  - Cardiac arrest [Recovered/Resolved]
  - Ventricular asystole [Recovered/Resolved]
  - Sinus bradycardia [Recovered/Resolved]
  - Bradyarrhythmia [Recovered/Resolved]
  - Mental disorder [Recovered/Resolved]
  - Hyponatraemia [Recovered/Resolved]
  - Blood electrolytes abnormal [Recovered/Resolved]
  - Alcohol interaction [Recovered/Resolved]
